FAERS Safety Report 7208617-6 (Version None)
Quarter: 2011Q1

REPORT INFORMATION
  Report Type: 
  Country: None (occurrence: None)
  Receive Date: 20110104
  Receipt Date: 20101227
  Transmission Date: 20110831
  Serious: Yes (Disabling)
  Sender: FDA-Public Use
  Company Number: FR-ROCHE-739440

PATIENT
  Sex: Male
  Weight: 73 kg

DRUGS (3)
  1. AVASTIN [Suspect]
     Indication: NON-SMALL CELL LUNG CANCER
     Route: 042
     Dates: start: 20090914, end: 20101004
  2. AVASTIN [Suspect]
     Route: 042
  3. AVASTIN [Suspect]
     Route: 042

REACTIONS (4)
  - PAIN IN EXTREMITY [None]
  - NEOPLASM MALIGNANT [None]
  - MYALGIA [None]
  - MUSCULOSKELETAL STIFFNESS [None]
